FAERS Safety Report 8183948-4 (Version None)
Quarter: 2012Q1

REPORT INFORMATION
  Report Type: 
  Country: None (occurrence: None)
  Receive Date: 20120305
  Receipt Date: 20120302
  Transmission Date: 20120608
  Serious: No
  Sender: FDA-Public Use
  Company Number: US-PFIZER INC-2012056910

PATIENT
  Sex: Female
  Weight: 65.76 kg

DRUGS (1)
  1. ADVIL COLD AND SINUS [Suspect]
     Indication: SINUSITIS
     Dosage: 200 MG, 4X/DAY
     Route: 048
     Dates: start: 20120228, end: 20120301

REACTIONS (2)
  - MALAISE [None]
  - COUGH [None]
